FAERS Safety Report 10429588 (Version 2)
Quarter: 2014Q3

REPORT INFORMATION
  Report Type: Spontaneous
  Country: US (occurrence: US)
  Receive Date: 20140904
  Receipt Date: 20140904
  Transmission Date: 20150326
  Serious: Yes (Hospitalization)
  Sender: FDA-Public Use
  Company Number: US-ELI_LILLY_AND_COMPANY-US201406002075

PATIENT
  Sex: Female
  Weight: 64.94 kg

DRUGS (1)
  1. FORTEO [Suspect]
     Active Substance: TERIPARATIDE
     Indication: OSTEOPOROSIS
     Dosage: 20 UG, QD
     Route: 058
     Dates: start: 20130325, end: 201405

REACTIONS (4)
  - Arthralgia [Unknown]
  - Compression fracture [Unknown]
  - Bone pain [Unknown]
  - Fatigue [Unknown]
